FAERS Safety Report 8999068 (Version 1)
Quarter: 2013Q1

REPORT INFORMATION
  Report Type: Spontaneous
  Country: BR (occurrence: BR)
  Receive Date: 20130103
  Receipt Date: 20130103
  Transmission Date: 20140127
  Serious: Yes (Hospitalization, Other)
  Sender: FDA-Public Use
  Company Number: PHHY2012BR120995

PATIENT
  Sex: Female
  Weight: 59 kg

DRUGS (4)
  1. FORASEQ [Suspect]
     Indication: EMPHYSEMA
     Dosage: 1 DF(12/400 MCG), BID
  2. REDUCLIM [Concomitant]
     Indication: HORMONE THERAPY
     Dosage: 2.5 MG, DAILY
     Route: 048
  3. OVESTRION [Concomitant]
     Indication: HORMONE THERAPY
     Dosage: UNK, BIW
  4. RETEMIC [Concomitant]
     Indication: MICTURITION URGENCY
     Dosage: 25 MG, DAILY
     Route: 048

REACTIONS (3)
  - Pulmonary mass [Recovered/Resolved]
  - Pulmonary tuberculosis [Recovered/Resolved]
  - Chest pain [Not Recovered/Not Resolved]
